FAERS Safety Report 6125053-4 (Version None)
Quarter: 2009Q1

REPORT INFORMATION
  Report Type: 
  Country: None (occurrence: None)
  Receive Date: 20090318
  Receipt Date: 20090304
  Transmission Date: 20090719
  Serious: Yes (Hospitalization)
  Sender: FDA-Public Use
  Company Number: 2009EN000044

PATIENT
  Age: 20 Year
  Sex: Male

DRUGS (1)
  1. ONCASPAR [Suspect]
     Indication: ACUTE LYMPHOCYTIC LEUKAEMIA
     Dates: start: 20080501

REACTIONS (4)
  - HEMIPARESIS [None]
  - NERVOUS SYSTEM DISORDER [None]
  - SENSATION OF PRESSURE [None]
  - VOMITING [None]
